FAERS Safety Report 6690376-7 (Version None)
Quarter: 2010Q2

REPORT INFORMATION
  Report Type: 
  Country: None (occurrence: None)
  Receive Date: 20100421
  Receipt Date: 20100409
  Transmission Date: 20101027
  Serious: Yes (Hospitalization)
  Sender: FDA-Public Use
  Company Number: GB-ELI_LILLY_AND_COMPANY-GB201004002808

PATIENT
  Sex: Female

DRUGS (2)
  1. HUMULIN R [Suspect]
     Dosage: UNK, UNKNOWN
     Dates: start: 20090801
  2. INSULATARD [Concomitant]
     Dosage: UNK, UNKNOWN

REACTIONS (2)
  - INFECTION [None]
  - OFF LABEL USE [None]
